FAERS Safety Report 20044049 (Version 1)
Quarter: 2021Q4

REPORT INFORMATION
  Report Type: Spontaneous
  Country: IN (occurrence: IN)
  Receive Date: 20211108
  Receipt Date: 20211108
  Transmission Date: 20220303
  Serious: Yes (Life-Threatening, Hospitalization)
  Sender: FDA-Public Use
  Company Number: IN-MYLANLABS-2021M1081007

PATIENT
  Age: 6 Year
  Sex: Female

DRUGS (3)
  1. DEXAMETHASONE [Suspect]
     Active Substance: DEXAMETHASONE
     Indication: B precursor type acute leukaemia
     Dosage: 10 MILLIGRAM/SQ. METER, QD
     Route: 065
  2. RIFAMPIN [Concomitant]
     Active Substance: RIFAMPIN
     Indication: Antibiotic therapy
     Dosage: UNK
     Route: 065
  3. ASPARAGINASE [Concomitant]
     Active Substance: ASPARAGINASE
     Indication: B precursor type acute leukaemia
     Dosage: 10,000 U/M2
     Route: 065

REACTIONS (7)
  - Gastropleural fistula [Recovered/Resolved]
  - Empyema [Recovering/Resolving]
  - Chylothorax [Recovering/Resolving]
  - Pneumothorax [Recovering/Resolving]
  - Respiratory distress [Recovering/Resolving]
  - Haematemesis [Recovered/Resolved]
  - Gastric ulcer perforation [Unknown]
